FAERS Safety Report 7108529-2 (Version None)
Quarter: 2010Q4

REPORT INFORMATION
  Report Type: 
  Country: None (occurrence: None)
  Receive Date: 20101117
  Receipt Date: 20100818
  Transmission Date: 20110411
  Serious: No
  Sender: FDA-Public Use
  Company Number: A0876522A

PATIENT

DRUGS (2)
  1. VOTRIENT [Suspect]
     Route: 048
  2. NO CONCURRENT MEDICATION [Concomitant]

REACTIONS (1)
  - MUSCLE SPASMS [None]
